FAERS Safety Report 13944685 (Version 1)
Quarter: 2017Q3

REPORT INFORMATION
  Report Type: Spontaneous
  Country: US (occurrence: US)
  Receive Date: 20170907
  Receipt Date: 20170907
  Transmission Date: 20171128
  Serious: Yes (Hospitalization, Other)
  Sender: FDA-Public Use
  Company Number: US-SUN PHARMACEUTICAL INDUSTRIES LTD-2017US-149327

PATIENT
  Age: 49 Year
  Sex: Female

DRUGS (2)
  1. FORMOTEROL FUMARATE/BUDESONIDE [Suspect]
     Active Substance: BUDESONIDE\FORMOTEROL FUMARATE
     Indication: PRODUCT USED FOR UNKNOWN INDICATION
     Route: 065
  2. SALBUTAMOL [Suspect]
     Active Substance: ALBUTEROL
     Indication: DYSPNOEA EXERTIONAL
     Route: 065

REACTIONS (6)
  - Placenta praevia [Unknown]
  - Self-medication [Unknown]
  - Premature labour [Unknown]
  - Supraventricular tachycardia [Unknown]
  - Exposure during pregnancy [Unknown]
  - Disease progression [Unknown]
